FAERS Safety Report 24248362 (Version 3)
Quarter: 2024Q4

REPORT INFORMATION
  Report Type: Report from Study
  Country: US (occurrence: US)
  Receive Date: 20240826
  Receipt Date: 20241213
  Transmission Date: 20250114
  Serious: Yes (Hospitalization)
  Sender: ROCHE
  Company Number: US-ROCHE-10000064284

PATIENT
  Age: 46 Year
  Sex: Female
  Weight: 81.19 kg

DRUGS (1)
  1. EVRYSDI [Suspect]
     Active Substance: RISDIPLAM
     Indication: Spinal muscular atrophy
     Dosage: STRENGTH: 0.75 MG / 1 ML
     Route: 048
     Dates: start: 20210713, end: 20220420

REACTIONS (4)
  - Fall [Unknown]
  - Ligament sprain [Not Recovered/Not Resolved]
  - Pain in extremity [Not Recovered/Not Resolved]
  - Foot fracture [Unknown]
